FAERS Safety Report 13929678 (Version 1)
Quarter: 2017Q3

REPORT INFORMATION
  Report Type: Spontaneous
  Country: ZA (occurrence: ZA)
  Receive Date: 20170901
  Receipt Date: 20170901
  Transmission Date: 20171127
  Serious: Yes (Hospitalization)
  Sender: FDA-Public Use
  Company Number: ZA-FRESENIUS KABI-FK201707281

PATIENT
  Age: 4 Year
  Sex: Female

DRUGS (10)
  1. ETHAMBUTOL [Suspect]
     Active Substance: ETHAMBUTOL HYDROCHLORIDE
     Indication: MENINGITIS TUBERCULOUS
  2. LINEZOLID (MANUFACTURER UNKNOWN) [Suspect]
     Active Substance: LINEZOLID
     Indication: PRODUCT USED FOR UNKNOWN INDICATION
     Route: 065
  3. TERIZIDONE [Suspect]
     Active Substance: TERIZIDONE
     Indication: MENINGITIS TUBERCULOUS
  4. PYRAZINAMIDE. [Suspect]
     Active Substance: PYRAZINAMIDE
     Indication: MENINGITIS TUBERCULOUS
  5. AMIKACIN [Suspect]
     Active Substance: AMIKACIN
     Indication: MENINGITIS TUBERCULOUS
  6. ISONIAZID (MANUFACTURER UNKNOWN) [Suspect]
     Active Substance: ISONIAZID
     Indication: MENINGITIS TUBERCULOUS
  7. OFLOXACIN. [Suspect]
     Active Substance: OFLOXACIN
     Indication: MENINGITIS TUBERCULOUS
  8. RIFAMPIN (MANUFACTURER UNKNOWN) [Suspect]
     Active Substance: RIFAMPIN
     Indication: MENINGITIS TUBERCULOUS
  9. ETHIONAMIDE [Suspect]
     Active Substance: ETHIONAMIDE
     Indication: MENINGITIS TUBERCULOUS
  10. CLOFAZIMINE [Suspect]
     Active Substance: CLOFAZIMINE
     Indication: PRODUCT USED FOR UNKNOWN INDICATION

REACTIONS (6)
  - Hepatic enzyme increased [Recovered/Resolved]
  - Anaemia [Recovered/Resolved]
  - Hypothyroidism [Recovered/Resolved]
  - Alanine aminotransferase increased [Recovered/Resolved]
  - Gastrointestinal disorder [Recovered/Resolved]
  - Drug resistance [Recovered/Resolved]
